FAERS Safety Report 10010124 (Version 1)
Quarter: 2014Q1

REPORT INFORMATION
  Report Type: Spontaneous
  Country: US (occurrence: US)
  Receive Date: 20140312
  Receipt Date: 20140312
  Transmission Date: 20141002
  Serious: No
  Sender: FDA-Public Use
  Company Number: US-INCYTE CORPORATION-2013IN001597

PATIENT
  Age: 68 Year
  Sex: Male

DRUGS (18)
  1. JAKAFI [Suspect]
     Indication: MYELOFIBROSIS
     Dosage: 10 MG, BID
     Route: 048
     Dates: start: 20130718
  2. DIAMOX [Concomitant]
  3. OPANA [Concomitant]
  4. TRENTAL [Concomitant]
  5. ULTRAM [Concomitant]
  6. MIRAPEX [Concomitant]
  7. OXYCODONE [Concomitant]
  8. FERROUS SULPHATE [Concomitant]
  9. LYRICA [Concomitant]
  10. ALLOPURINOL [Concomitant]
  11. LASIX [Concomitant]
  12. ASPIRIN [Concomitant]
  13. NEXIUM [Concomitant]
  14. ANTIVERT [Concomitant]
  15. B12 [Concomitant]
  16. VITAMIN D3 [Concomitant]
  17. CENTRUM SILVER [Concomitant]
  18. VITAMIN C WITH ROSE HIPS [Concomitant]

REACTIONS (1)
  - Nausea [Not Recovered/Not Resolved]
